FAERS Safety Report 13356556 (Version 2)
Quarter: 2017Q4

REPORT INFORMATION
  Report Type: Spontaneous
  Country: GR (occurrence: GR)
  Receive Date: 20170321
  Receipt Date: 20171227
  Transmission Date: 20180320
  Serious: Yes (Other)
  Sender: FDA-Public Use
  Company Number: PHHY2017GR038308

PATIENT
  Age: 79 Year
  Sex: Male

DRUGS (1)
  1. STALEVO [Suspect]
     Active Substance: CARBIDOPA\ENTACAPONE\LEVODOPA
     Indication: PRODUCT USED FOR UNKNOWN INDICATION
     Dosage: 50 MG, TID
     Route: 065

REACTIONS (5)
  - Dizziness [Unknown]
  - Dyspnoea [Unknown]
  - Blood pressure abnormal [Unknown]
  - Fall [Unknown]
  - Dysphagia [Unknown]
